FAERS Safety Report 7419796-X (Version None)
Quarter: 2011Q2

REPORT INFORMATION
  Report Type: 
  Country: None (occurrence: None)
  Receive Date: 20110413
  Receipt Date: 20110413
  Transmission Date: 20111010
  Serious: Yes (Other)
  Sender: FDA-Public Use
  Company Number: None

PATIENT
  Age: 63 Year
  Sex: Female
  Weight: 77.1115 kg

DRUGS (1)
  1. CLINDAMYCIN HCL [Suspect]
     Indication: TOOTH INFECTION
     Dosage: 150 MG 3 X DAILY PO
     Route: 048
     Dates: start: 20110303, end: 20110313

REACTIONS (5)
  - ABDOMINAL PAIN UPPER [None]
  - ABDOMINAL PAIN [None]
  - MUCOUS STOOLS [None]
  - HAEMATOCHEZIA [None]
  - DIARRHOEA [None]
